FAERS Safety Report 10552512 (Version 1)
Quarter: 2014Q4

REPORT INFORMATION
  Report Type: Spontaneous
  Country: US (occurrence: None)
  Receive Date: 20141023
  Receipt Date: 20141023
  Transmission Date: 20150529
  Serious: No
  Sender: FDA-Public Use
  Company Number: AP356-01164-SPO-US

PATIENT
  Age: 55 Year
  Sex: Female
  Weight: 97.5 kg

DRUGS (4)
  1. BELVIQ [Suspect]
     Active Substance: LORCASERIN HYDROCHLORIDE
     Indication: WEIGHT DECREASED
     Dosage: 20 MG, 2 IN 1D, ORAL
     Route: 048
     Dates: start: 20140804
  2. METOPROLOL (METOPROLOL) [Concomitant]
     Active Substance: METOPROLOL
  3. LOSARTAN HCTZ (HYZAAR) [Concomitant]
  4. VERAPAMIL HCL ER (VERAPAMIL HYDROCHLORIDE) [Concomitant]

REACTIONS (1)
  - Weight increased [None]

NARRATIVE: CASE EVENT DATE: 20140806
